FAERS Safety Report 4590236-1 (Version None)
Quarter: 2005Q1

REPORT INFORMATION
  Report Type: 
  Country: None (occurrence: None)
  Receive Date: 20050224
  Receipt Date: 20050214
  Transmission Date: 20050727
  Serious: Yes (Hospitalization)
  Sender: FDA-Public Use
  Company Number: 200510505JP

PATIENT
  Age: 60 Year
  Sex: Male
  Weight: 65 kg

DRUGS (2)
  1. DAONIL [Suspect]
     Indication: HYPERGLYCAEMIA
     Route: 048
     Dates: start: 20041001, end: 20041129
  2. UNKNOWN DRUG [Concomitant]

REACTIONS (3)
  - GENERALISED OEDEMA [None]
  - HYPERGLYCAEMIA [None]
  - HYPOALBUMINAEMIA [None]
